FAERS Safety Report 5213306-3 (Version None)
Quarter: 2007Q1

REPORT INFORMATION
  Report Type: 
  Country: None (occurrence: None)
  Receive Date: 20070119
  Receipt Date: 20070112
  Transmission Date: 20070707
  Serious: Yes (Other)
  Sender: FDA-Public Use
  Company Number: US-JNJFOC-20070102860

PATIENT
  Age: 17 Year
  Sex: Male

DRUGS (1)
  1. TOPAMAX [Suspect]
     Indication: DRUG USE FOR UNKNOWN INDICATION
     Dosage: ^10 PILLS^ (UNSPECIFIED DOSE)

REACTIONS (3)
  - CONFUSIONAL STATE [None]
  - HEMIPARESIS [None]
  - OVERDOSE [None]
